FAERS Safety Report 18264087 (Version 1)
Quarter: 2020Q3

REPORT INFORMATION
  Report Type: Spontaneous
  Country: US (occurrence: US)
  Receive Date: 20200914
  Receipt Date: 20200914
  Transmission Date: 20201103
  Serious: No
  Sender: FDA-Public Use
  Company Number: US-TEVA-2020-US-1827614

PATIENT
  Age: 67 Year
  Sex: Female

DRUGS (1)
  1. TRAMADOL. [Suspect]
     Active Substance: TRAMADOL
     Indication: ARTHRITIS
     Dosage: 4 TIMES A DAY, SO 200 MG DAILY/TAKING FOR ABOUT 9 MONTHS

REACTIONS (1)
  - Therapeutic response unexpected [Unknown]
